FAERS Safety Report 6224303-3 (Version None)
Quarter: 2009Q2

REPORT INFORMATION
  Report Type: 
  Country: None (occurrence: None)
  Receive Date: 20090612
  Receipt Date: 20090313
  Transmission Date: 20091009
  Serious: No
  Sender: FDA-Public Use
  Company Number: US-ABBOTT-09P-163-0562776-00

PATIENT
  Sex: Male
  Weight: 38.136 kg

DRUGS (4)
  1. HUMIRA [Suspect]
     Indication: CROHN'S DISEASE
     Route: 058
     Dates: start: 20081205, end: 20081205
  2. HUMIRA [Suspect]
     Route: 058
     Dates: start: 20081212, end: 20081212
  3. HUMIRA [Suspect]
     Route: 058
     Dates: start: 20081219, end: 20090313
  4. HUMIRA [Suspect]
     Route: 058
     Dates: start: 20090320

REACTIONS (5)
  - DIZZINESS [None]
  - LOSS OF CONSCIOUSNESS [None]
  - NAUSEA [None]
  - SYNCOPE [None]
  - VOMITING [None]
